FAERS Safety Report 7637297-0 (Version None)
Quarter: 2011Q3

REPORT INFORMATION
  Report Type: 
  Country: None (occurrence: None)
  Receive Date: 20110726
  Receipt Date: 20110617
  Transmission Date: 20111222
  Serious: Yes (Other)
  Sender: FDA-Public Use
  Company Number: US-BAYER-2011-030549

PATIENT
  Sex: Female
  Weight: 55 kg

DRUGS (3)
  1. GADOLINIUM IN UNSPECIFIED DRUG [Suspect]
     Indication: NUCLEAR MAGNETIC RESONANCE IMAGING BRAIN
     Dosage: UNK
     Dates: start: 19990417, end: 19990417
  2. GADOLINIUM IN UNSPECIFIED DRUG [Suspect]
     Indication: ARTERIOGRAM
     Dosage: UNK
     Dates: start: 19990521, end: 19990521
  3. GADOLINIUM IN UNSPECIFIED DRUG [Suspect]
     Dosage: UNK
     Dates: start: 20000705, end: 20000705

REACTIONS (14)
  - DRY SKIN [None]
  - SKIN PLAQUE [None]
  - JOINT CONTRACTURE [None]
  - MYOSCLEROSIS [None]
  - OEDEMA PERIPHERAL [None]
  - SKIN HYPERTROPHY [None]
  - PRURITUS [None]
  - NEPHROGENIC SYSTEMIC FIBROSIS [None]
  - SKIN TIGHTNESS [None]
  - SKIN HYPERPIGMENTATION [None]
  - EXTREMITY CONTRACTURE [None]
  - SKIN FIBROSIS [None]
  - SKIN INDURATION [None]
  - JOINT STIFFNESS [None]
